FAERS Safety Report 17197382 (Version 3)
Quarter: 2020Q1

REPORT INFORMATION
  Report Type: Spontaneous
  Country: CN (occurrence: CN)
  Receive Date: 20191224
  Receipt Date: 20200103
  Transmission Date: 20200409
  Serious: Yes (Death, Hospitalization, Other)
  Sender: FDA-Public Use
  Company Number: CN-ASTRAZENECA-2019SF85693

PATIENT
  Age: 78 Year
  Sex: Female
  Weight: 60 kg

DRUGS (1)
  1. IRESSA [Suspect]
     Active Substance: GEFITINIB
     Indication: NON-SMALL CELL LUNG CANCER
     Route: 048
     Dates: start: 201810

REACTIONS (10)
  - Brain neoplasm [Fatal]
  - Pruritus [Not Recovered/Not Resolved]
  - Lung neoplasm [Unknown]
  - Adrenal neoplasm [Unknown]
  - Pyrexia [Unknown]
  - Malignant neoplasm progression [Fatal]
  - Appetite disorder [Not Recovered/Not Resolved]
  - Drug resistance [Fatal]
  - Intracranial pressure increased [Unknown]
  - Coma [Unknown]

NARRATIVE: CASE EVENT DATE: 2019
